FAERS Safety Report 22014898 (Version 1)
Quarter: 2023Q1

REPORT INFORMATION
  Report Type: Report from Study
  Country: US (occurrence: None)
  Receive Date: 20230221
  Receipt Date: 20230221
  Transmission Date: 20230418
  Serious: Yes (Death)
  Sender: FDA-Public Use
  Company Number: 2023A041742

PATIENT
  Age: 28768 Day
  Sex: Female

DRUGS (28)
  1. TAGRISSO [Suspect]
     Active Substance: OSIMERTINIB
     Indication: Lung neoplasm malignant
     Route: 048
     Dates: start: 20191031
  2. TAGRISSO [Suspect]
     Active Substance: OSIMERTINIB
     Indication: Lung neoplasm malignant
     Route: 048
     Dates: start: 20191031
  3. CEFDINIR [Concomitant]
     Active Substance: CEFDINIR
  4. MEDROL [Concomitant]
     Active Substance: METHYLPREDNISOLONE
  5. ESTRADIOL [Concomitant]
     Active Substance: ESTRADIOL
  6. LORAZEPAM [Concomitant]
     Active Substance: LORAZEPAM
  7. MYRBETRIQ [Concomitant]
     Active Substance: MIRABEGRON
  8. TRAZODONE HCL [Concomitant]
     Active Substance: TRAZODONE HYDROCHLORIDE
  9. LUNESTA [Concomitant]
     Active Substance: ESZOPICLONE
  10. HYDROXYZINE HYDROCHLORIDE [Concomitant]
     Active Substance: HYDROXYZINE HYDROCHLORIDE
  11. FLUOCINOLONE ACET-NIACINAMIDE [Concomitant]
  12. DICLOFENAC [Concomitant]
     Active Substance: DICLOFENAC
  13. METHOCARBAMOL [Concomitant]
     Active Substance: METHOCARBAMOL
  14. PREDNISONE [Concomitant]
     Active Substance: PREDNISONE
  15. MELATONIN [Concomitant]
     Active Substance: MELATONIN
  16. CRANBERRY [Concomitant]
     Active Substance: CRANBERRY
  17. ACIDOPHILUS [Concomitant]
     Active Substance: LACTOBACILLUS ACIDOPHILUS
  18. BETAINE HCL [Concomitant]
  19. OXYCODONE HYDROCHLORIDE [Concomitant]
     Active Substance: OXYCODONE HYDROCHLORIDE
  20. ASPIRIN [Concomitant]
     Active Substance: ASPIRIN
  21. ECHINACEA [Concomitant]
     Active Substance: ECHINACEA, UNSPECIFIED
  22. VITAMIN B12 [Concomitant]
     Active Substance: CYANOCOBALAMIN
  23. TRIAMCINOLONE ACETONIDE [Concomitant]
     Active Substance: TRIAMCINOLONE ACETONIDE
  24. VITAMIN D [Concomitant]
     Active Substance: VITAMIN D NOS
  25. BIOTIN [Concomitant]
     Active Substance: BIOTIN
  26. BETAINE HCL [Concomitant]
  27. ASPIRIN [Concomitant]
     Active Substance: ASPIRIN
  28. ECHINACEA [Concomitant]
     Active Substance: ECHINACEA, UNSPECIFIED

REACTIONS (1)
  - Death [Fatal]

NARRATIVE: CASE EVENT DATE: 20230216
